FAERS Safety Report 8454350-2 (Version None)
Quarter: 2012Q2

REPORT INFORMATION
  Report Type: 
  Country: None (occurrence: None)
  Receive Date: 20120621
  Receipt Date: 20120510
  Transmission Date: 20120825
  Serious: No
  Sender: FDA-Public Use
  Company Number: US-ALLERGAN-1205266US

PATIENT
  Age: 79 Year
  Sex: Male

DRUGS (3)
  1. PROSCAR [Concomitant]
     Indication: PROSTATOMEGALY
  2. LUMIGAN [Suspect]
     Indication: GLAUCOMA
     Dosage: 2 GTT, UNK
     Route: 047
  3. FLOMAX [Concomitant]
     Indication: PROSTATOMEGALY

REACTIONS (4)
  - ABDOMINAL PAIN UPPER [None]
  - CONFUSIONAL STATE [None]
  - MEMORY IMPAIRMENT [None]
  - AMNESIA [None]
